FAERS Safety Report 6520106-0 (Version None)
Quarter: 2009Q4

REPORT INFORMATION
  Report Type: 
  Country: None (occurrence: None)
  Receive Date: 20091229
  Receipt Date: 20091224
  Transmission Date: 20100525
  Serious: Yes (Death)
  Sender: FDA-Public Use
  Company Number: PHHY2009MX58490

PATIENT
  Age: 94 Year
  Sex: Female

DRUGS (5)
  1. DIOVAN HCT [Suspect]
     Indication: HYPERTENSION
     Dosage: 160/12.5MG 1 TABLET PER DAY
     Route: 048
     Dates: start: 20050301
  2. PLAVIX [Concomitant]
     Dosage: UNK
  3. LANOXIN [Concomitant]
     Dosage: UNK
  4. ASPIRIN [Concomitant]
     Dosage: UNK
  5. PHARMATON [Concomitant]
     Dosage: UNK

REACTIONS (1)
  - CEREBRAL HAEMORRHAGE [None]
